FAERS Safety Report 10269708 (Version 1)
Quarter: 2014Q2

REPORT INFORMATION
  Report Type: Spontaneous
  Country: US (occurrence: None)
  Receive Date: 20140626
  Receipt Date: 20140626
  Transmission Date: 20141212
  Serious: Yes (Disabling)
  Sender: FDA-Public Use
  Company Number: None

PATIENT
  Age: 80 Year
  Sex: Female
  Weight: 58.97 kg

DRUGS (1)
  1. ACTONEL [Suspect]
     Indication: BONE DENSITY ABNORMAL
     Dosage: ONE PILL MONTHLY TAKEN BY MOUTH
     Route: 048
     Dates: start: 201306, end: 201405

REACTIONS (4)
  - Constipation [None]
  - Dry skin [None]
  - Arthralgia [None]
  - Pain in extremity [None]
